FAERS Safety Report 4405001-5 (Version None)
Quarter: 2004Q3

REPORT INFORMATION
  Report Type: 
  Country: None (occurrence: None)
  Receive Date: 20040716
  Receipt Date: 20040708
  Transmission Date: 20050211
  Serious: Yes (Hospitalization)
  Sender: FDA-Public Use
  Company Number: 2004222914US

PATIENT
  Age: 62 Year
  Sex: Female
  Weight: 86.2 kg

DRUGS (3)
  1. CELEBREX [Suspect]
     Indication: ARTHRITIS
     Dosage: SEE IMAGE, ORAL
     Route: 048
     Dates: start: 20040429, end: 20040429
  2. CELEBREX [Suspect]
     Indication: ARTHRITIS
     Dosage: SEE IMAGE, ORAL
     Route: 048
     Dates: start: 20021001
  3. SYNTHROID [Concomitant]

REACTIONS (5)
  - GENERALISED ERYTHEMA [None]
  - HYPERHIDROSIS [None]
  - PRURITUS [None]
  - PULSE ABSENT [None]
  - SWOLLEN TONGUE [None]
